FAERS Safety Report 7326184-3 (Version None)
Quarter: 2011Q1

REPORT INFORMATION
  Report Type: 
  Country: None (occurrence: None)
  Receive Date: 20110302
  Receipt Date: 20110218
  Transmission Date: 20110831
  Serious: Yes (Other)
  Sender: FDA-Public Use
  Company Number: DE-AMGEN-DEUSP2011009801

PATIENT
  Sex: Female

DRUGS (1)
  1. NPLATE [Suspect]
     Indication: THROMBOCYTOPENIA
     Dosage: 1 A?G/KG, QWK
     Route: 058

REACTIONS (11)
  - UPPER RESPIRATORY TRACT CONGESTION [None]
  - PLATELET DESTRUCTION INCREASED [None]
  - PLATELET DISORDER [None]
  - MUCOSAL HAEMORRHAGE [None]
  - AUTOIMMUNE THROMBOCYTOPENIA [None]
  - MYELODYSPLASTIC SYNDROME [None]
  - REFRACTORINESS TO PLATELET TRANSFUSION [None]
  - HAEMORRHAGE [None]
  - HAEMATURIA [None]
  - PETECHIAE [None]
  - OFF LABEL USE [None]
